FAERS Safety Report 15455631 (Version 1)
Quarter: 2018Q4

REPORT INFORMATION
  Report Type: Other
  Country: PT (occurrence: PT)
  Receive Date: 20181002
  Receipt Date: 20181002
  Transmission Date: 20190204
  Serious: Yes (Hospitalization)
  Sender: FDA-Public Use
  Company Number: PT-LEADING PHARMA, LLC-2055575

PATIENT
  Age: 23 Year
  Sex: Male

DRUGS (1)
  1. FUROSEMIDE TABLETS , 20 MG, 40 MG AND 80 MG [Suspect]
     Active Substance: FUROSEMIDE

REACTIONS (2)
  - Hypocalcaemia [Recovered/Resolved]
  - Cardiac failure acute [Recovered/Resolved]
